FAERS Safety Report 25636892 (Version 2)
Quarter: 2025Q3

REPORT INFORMATION
  Report Type: Spontaneous
  Country: US (occurrence: US)
  Receive Date: 20250804
  Receipt Date: 20250825
  Transmission Date: 20251020
  Serious: No
  Sender: ROCHE
  Company Number: US-ROCHE-10000349381

PATIENT
  Age: 82 Year
  Sex: Female
  Weight: 79.38 kg

DRUGS (10)
  1. ACTEMRA [Suspect]
     Active Substance: TOCILIZUMAB
     Indication: Rheumatoid arthritis
     Route: 065
     Dates: start: 20250619
  2. FAMOTIDINE [Concomitant]
     Active Substance: FAMOTIDINE
  3. OXYMETAZOLINE HYDROCHLORIDE [Concomitant]
     Active Substance: OXYMETAZOLINE HYDROCHLORIDE
  4. AMLODIPINE [Concomitant]
     Active Substance: AMLODIPINE BESYLATE
  5. PREDNISONE [Concomitant]
     Active Substance: PREDNISONE
  6. PRAVASTATIN [Concomitant]
     Active Substance: PRAVASTATIN
  7. MONTELUKAST [Concomitant]
     Active Substance: MONTELUKAST
  8. METOPROLOL [Concomitant]
     Active Substance: METOPROLOL
  9. Metamucil and MOM [Concomitant]
  10. KENALOG [Concomitant]
     Active Substance: TRIAMCINOLONE ACETONIDE
     Indication: Jaw disorder

REACTIONS (3)
  - Hypertension [Unknown]
  - Blood chromogranin A increased [Unknown]
  - Flushing [Unknown]
